FAERS Safety Report 11116448 (Version 2)
Quarter: 2015Q4

REPORT INFORMATION
  Report Type: Spontaneous
  Country: US (occurrence: US)
  Receive Date: 20150515
  Receipt Date: 20151028
  Transmission Date: 20160304
  Serious: Yes (Hospitalization, Other)
  Sender: FDA-Public Use
  Company Number: US-BAYER-2015-216368

PATIENT
  Age: 69 Year

DRUGS (20)
  1. AMLODIPINE [Concomitant]
     Active Substance: AMLODIPINE BESYLATE
     Indication: HYPERTENSION
     Dosage: 10 MG, BID
  2. ONDANSETRON [Concomitant]
     Active Substance: ONDANSETRON
  3. LOSARTAN. [Concomitant]
     Active Substance: LOSARTAN
  4. MIRALAX [Suspect]
     Active Substance: POLYETHYLENE GLYCOL 3350
     Indication: CONSTIPATION
     Dosage: UNK
     Dates: start: 201305, end: 20130612
  5. POLYETHYLENE GLYCOL [Concomitant]
     Active Substance: POLYETHYLENE GLYCOLS
     Dosage: U17 GRAMS PACKET
     Route: 048
  6. BISACODYL. [Concomitant]
     Active Substance: BISACODYL
  7. CLOPIDOGREL [Concomitant]
     Active Substance: CLOPIDOGREL BISULFATE
  8. OXYCODONE [Concomitant]
     Active Substance: OXYCODONE
  9. BUMEX [Suspect]
     Active Substance: BUMETANIDE
  10. ALLOPURINOL. [Concomitant]
     Active Substance: ALLOPURINOL
  11. LACTULOSE. [Concomitant]
     Active Substance: LACTULOSE
  12. PERCOCET [Concomitant]
     Active Substance: ACETAMINOPHEN\OXYCODONE HYDROCHLORIDE
     Indication: ARTHRALGIA
  13. CARVEDILOL. [Concomitant]
     Active Substance: CARVEDILOL
  14. LEVOTHYROXINE. [Concomitant]
     Active Substance: LEVOTHYROXINE
  15. COLACE [Concomitant]
     Active Substance: DOCUSATE SODIUM
  16. SODIUM CHLORIDE. [Concomitant]
     Active Substance: SODIUM CHLORIDE
     Route: 045
  17. COLCHICINE. [Concomitant]
     Active Substance: COLCHICINE
  18. MIRALAX [Suspect]
     Active Substance: POLYETHYLENE GLYCOL 3350
     Indication: CONSTIPATION
     Dosage: UNK
     Dates: start: 2009
  19. LASIX [Concomitant]
     Active Substance: FUROSEMIDE
  20. GABAPENTIN. [Concomitant]
     Active Substance: GABAPENTIN

REACTIONS (48)
  - Constipation [None]
  - Hypoglycaemia [None]
  - Melaena [None]
  - Haemoglobin decreased [None]
  - Coronary artery disease [None]
  - Diabetes mellitus [None]
  - Acute kidney injury [Unknown]
  - Flank pain [Unknown]
  - Oedema peripheral [None]
  - Renal impairment [None]
  - Azotaemia [None]
  - Chronic kidney disease [None]
  - Plasma cell myeloma [None]
  - Gastrointestinal haemorrhage [None]
  - Iron deficiency anaemia [None]
  - Malaise [None]
  - Nausea [Unknown]
  - Abdominal distension [None]
  - Acute kidney injury [None]
  - Chest pain [None]
  - Helicobacter gastritis [None]
  - Oedema peripheral [None]
  - Vomiting [None]
  - Anaemia [None]
  - Hyponatraemia [None]
  - Flank pain [None]
  - Nausea [None]
  - Monoclonal gammopathy [None]
  - Weight increased [None]
  - Decreased appetite [None]
  - Metabolic acidosis [None]
  - Pancytopenia [None]
  - Hypovitaminosis [None]
  - Gallbladder enlargement [None]
  - Orthopnoea [None]
  - Dyspnoea [None]
  - Abdominal pain upper [None]
  - Abdominal pain [None]
  - Crystal nephropathy [None]
  - Myeloma cast nephropathy [None]
  - Asthenia [None]
  - Urine output decreased [None]
  - Asterixis [None]
  - Hypocalcaemia [None]
  - Adrenal mass [None]
  - Blood creatinine increased [None]
  - Dysgeusia [None]
  - Product use issue [Recovered/Resolved]

NARRATIVE: CASE EVENT DATE: 200905
